FAERS Safety Report 23183415 (Version 1)
Quarter: 2023Q4

REPORT INFORMATION
  Report Type: Spontaneous
  Country: FR (occurrence: FR)
  Receive Date: 20231114
  Receipt Date: 20231114
  Transmission Date: 20240109
  Serious: Yes (Other)
  Sender: FDA-Public Use
  Company Number: FR-JNJFOC-20231073781

PATIENT
  Age: 69 Year
  Sex: Male

DRUGS (3)
  1. DEXAMETHASONE [Suspect]
     Active Substance: DEXAMETHASONE
     Indication: Plasma cell myeloma
     Dosage: 1 DOSE(S) /WEEK 4 WEEK(S)/CYCLE LINE NUMBER: 2
     Route: 065
  2. LENALIDOMIDE [Suspect]
     Active Substance: LENALIDOMIDE
     Indication: Plasma cell myeloma
     Dosage: 7 DOSE(S)/WEEK 3 WEEK(S)/CYCLE LINE NUMBER: 2
     Route: 065
  3. DARATUMUMAB [Suspect]
     Active Substance: DARATUMUMAB
     Indication: Plasma cell myeloma
     Dosage: 1 DOSE(S)/WEEK 4 WEEK(S)/CYCLE LINE NUMBER: 2
     Route: 065

REACTIONS (4)
  - Osteonecrosis [Unknown]
  - Bone disorder [Unknown]
  - Off label use [Unknown]
  - Intentional product use issue [Unknown]
